FAERS Safety Report 18198357 (Version 3)
Quarter: 2023Q4

REPORT INFORMATION
  Report Type: Report from Study
  Country: JP (occurrence: JP)
  Receive Date: 20200826
  Receipt Date: 20231121
  Transmission Date: 20240109
  Serious: Yes (Hospitalization)
  Sender: FDA-Public Use
  Company Number: JP-PFIZER INC-2020326965

PATIENT
  Age: 69 Year
  Sex: Female

DRUGS (14)
  1. VYNDAQEL [Suspect]
     Active Substance: TAFAMIDIS MEGLUMINE
     Indication: Cardiac amyloidosis
     Dosage: 80 MG, 1X/DAY
     Dates: start: 20200608, end: 20200629
  2. AMIODARONE HYDROCHLORIDE [Concomitant]
     Active Substance: AMIODARONE HYDROCHLORIDE
     Indication: Cardiac amyloidosis
     Dosage: UNK
     Route: 048
     Dates: end: 20200627
  3. PIMOBENDAN [Concomitant]
     Active Substance: PIMOBENDAN
     Indication: Cardiac amyloidosis
     Dosage: UNK
     Route: 048
     Dates: end: 20200609
  4. XARELTO [Concomitant]
     Active Substance: RIVAROXABAN
     Indication: Cardiac amyloidosis
     Dosage: UNK
     Route: 048
  5. SAMSCA [Concomitant]
     Active Substance: TOLVAPTAN
     Indication: Cardiac amyloidosis
     Dosage: UNK
     Route: 048
     Dates: end: 20200609
  6. DILTIAZEM HYDROCHLORIDE [Concomitant]
     Active Substance: DILTIAZEM HYDROCHLORIDE
     Indication: Cardiac amyloidosis
     Dosage: UNK
     Route: 048
     Dates: end: 20200627
  7. URSO [Concomitant]
     Active Substance: URSODIOL
     Dosage: UNK
     Route: 048
  8. FUROSEMIDE [Concomitant]
     Active Substance: FUROSEMIDE
     Indication: Cardiac amyloidosis
     Dosage: UNK
     Route: 048
     Dates: end: 20200610
  9. SPIRONOLACTONE [Concomitant]
     Active Substance: SPIRONOLACTONE
     Indication: Cardiac amyloidosis
     Dosage: UNK
     Route: 048
     Dates: end: 20200609
  10. FEBUXOSTAT [Concomitant]
     Active Substance: FEBUXOSTAT
     Indication: Cardiac amyloidosis
     Dosage: UNK
     Route: 048
  11. ISOSORBIDE DINITRATE [Concomitant]
     Active Substance: ISOSORBIDE DINITRATE
     Indication: Cardiac amyloidosis
     Dosage: UNK
     Route: 061
  12. MIYA-BM [Concomitant]
     Active Substance: CLOSTRIDIUM BUTYRICUM SPORES STRAIN M-55
     Indication: Cardiac amyloidosis
     Dosage: UNK
     Route: 048
  13. ISOSORBIDE DINITRATE [Concomitant]
     Active Substance: ISOSORBIDE DINITRATE
     Indication: Cardiac amyloidosis
     Dosage: UNK
     Route: 048
  14. VONOPRAZAN FUMARATE [Concomitant]
     Active Substance: VONOPRAZAN FUMARATE
     Indication: Cardiac amyloidosis
     Dosage: UNK
     Route: 048

REACTIONS (1)
  - Cardiac failure [Recovering/Resolving]

NARRATIVE: CASE EVENT DATE: 20200609
